FAERS Safety Report 15473619 (Version 1)
Quarter: 2018Q4

REPORT INFORMATION
  Report Type: Spontaneous
  Country: US (occurrence: US)
  Receive Date: 20181008
  Receipt Date: 20181008
  Transmission Date: 20190205
  Serious: Yes (Hospitalization)
  Sender: FDA-Public Use
  Company Number: US-APOTEX-2018AP021882

PATIENT
  Age: 16 Year
  Sex: Female

DRUGS (8)
  1. ARIPIPRAZOLE. [Suspect]
     Active Substance: ARIPIPRAZOLE
     Indication: SCHIZOPHRENIA
     Dosage: 30 MG, UNK
     Route: 065
  2. LAMOTRIGINE. [Suspect]
     Active Substance: LAMOTRIGINE
     Indication: SCHIZOPHRENIA
     Dosage: 25 MG, DAILY
     Route: 065
  3. PERPHENAZINE. [Concomitant]
     Active Substance: PERPHENAZINE
     Dosage: 8 MG, Q.H.S.
     Route: 065
  4. ARIPIPRAZOLE. [Suspect]
     Active Substance: ARIPIPRAZOLE
     Indication: HYPERPROLACTINAEMIA
  5. PALIPERIDONE. [Concomitant]
     Active Substance: PALIPERIDONE
     Indication: SCHIZOPHRENIA
     Dosage: UNK
     Route: 065
  6. RISPERIDONE. [Suspect]
     Active Substance: RISPERIDONE
     Indication: SCHIZOPHRENIA
     Dosage: 4 MG, DAILY
     Route: 065
  7. PERPHENAZINE. [Concomitant]
     Active Substance: PERPHENAZINE
     Indication: SCHIZOPHRENIA
     Dosage: 10 MG, Q.AM
     Route: 065
  8. OLANZAPINE. [Suspect]
     Active Substance: OLANZAPINE
     Indication: SCHIZOPHRENIA
     Dosage: UNK
     Route: 065
     Dates: start: 2016

REACTIONS (5)
  - Drug ineffective [Unknown]
  - Drug effect incomplete [Unknown]
  - Sedation [Unknown]
  - Hyperprolactinaemia [Recovering/Resolving]
  - Treatment noncompliance [Unknown]
